FAERS Safety Report 8240851-9 (Version None)
Quarter: 2012Q1

REPORT INFORMATION
  Report Type: 
  Country: None (occurrence: None)
  Receive Date: 20120328
  Receipt Date: 20120320
  Transmission Date: 20120608
  Serious: Yes (Other)
  Sender: FDA-Public Use
  Company Number: CA-JNJFOC-20120309444

PATIENT
  Sex: Male
  Weight: 99 kg

DRUGS (8)
  1. ENTOCORT EC [Concomitant]
     Route: 065
  2. IMURAN [Concomitant]
     Dosage: 3 TABLETS
     Route: 048
  3. PENTASA [Concomitant]
     Route: 065
  4. PERCOCET [Concomitant]
     Route: 065
  5. ATACAND [Concomitant]
     Route: 065
  6. REMICADE [Suspect]
     Indication: CROHN'S DISEASE
     Route: 042
     Dates: start: 20110701
  7. ALL OTHER THERAPEUTICS [Concomitant]
     Dosage: TRADE: PAEOACID
     Route: 065
  8. CRESTOR [Concomitant]
     Route: 065

REACTIONS (1)
  - CALCINOSIS [None]
